FAERS Safety Report 8561917-X (Version None)
Quarter: 2012Q3

REPORT INFORMATION
  Report Type: 
  Country: None (occurrence: None)
  Receive Date: 20120802
  Receipt Date: 20120703
  Transmission Date: 20120928
  Serious: No
  Sender: FDA-Public Use
  Company Number: US-AMGEN-USASP2011017106

PATIENT
  Age: 59 Year
  Sex: Female
  Weight: 63.039 kg

DRUGS (5)
  1. FOLIC ACID [Concomitant]
     Dosage: 800 MUG, QD
     Route: 048
     Dates: start: 20041214
  2. ENBREL [Suspect]
     Indication: RHEUMATOID ARTHRITIS
     Dosage: 50 MG, QWK
     Route: 058
     Dates: start: 20041214
  3. PREDNISONE [Concomitant]
     Dosage: 5 MG, QD
     Dates: start: 20080101
  4. METHOTREXATE [Concomitant]
     Dosage: 10 MG, QWK
     Route: 048
     Dates: start: 20041214
  5. ALLOPURINOL [Concomitant]
     Dosage: 100 MG, QD
     Dates: start: 20080905

REACTIONS (5)
  - FATIGUE [None]
  - SINUSITIS [None]
  - INJECTION SITE PAIN [None]
  - FACE AND MOUTH X-RAY ABNORMAL [None]
  - EAR INFECTION [None]
